FAERS Safety Report 16104465 (Version 3)
Quarter: 2019Q2

REPORT INFORMATION
  Report Type: Spontaneous
  Country: US (occurrence: US)
  Receive Date: 20190322
  Receipt Date: 20190513
  Transmission Date: 20190711
  Serious: Yes (Other)
  Sender: FDA-Public Use
  Company Number: US-GLENMARK PHARMACEUTICALS-2019GMK040277

PATIENT

DRUGS (1)
  1. LITHIUM CARBONATE. [Suspect]
     Active Substance: LITHIUM CARBONATE
     Indication: BIPOLAR I DISORDER
     Dosage: 657 MG, QD (TAKE 450MG IN THE MORNING AND HALF IN THE EVENING)
     Route: 048
     Dates: start: 20190311, end: 20190311

REACTIONS (11)
  - Malaise [Recovered/Resolved]
  - Dyspepsia [Recovered/Resolved]
  - Product quality issue [Unknown]
  - Anxiety [Recovered/Resolved]
  - Drug intolerance [Recovered/Resolved]
  - Ill-defined disorder [Recovered/Resolved]
  - Drug ineffective [Unknown]
  - Product physical issue [Unknown]
  - Product substitution issue [Unknown]
  - Crohn^s disease [Recovered/Resolved]
  - Irritable bowel syndrome [Recovered/Resolved]

NARRATIVE: CASE EVENT DATE: 20190311
